FAERS Safety Report 5581609-9 (Version None)
Quarter: 2008Q1

REPORT INFORMATION
  Report Type: 
  Country: None (occurrence: None)
  Receive Date: 20080104
  Receipt Date: 20071227
  Transmission Date: 20080703
  Serious: Yes (Hospitalization)
  Sender: FDA-Public Use
  Company Number: US-BRISTOL-MYERS SQUIBB COMPANY-14005342

PATIENT
  Age: 73 Year
  Sex: Male

DRUGS (11)
  1. ERBITUX [Suspect]
     Indication: SQUAMOUS CELL CARCINOMA
     Dosage: INITIAL LOADING DOSE OF 730 MG IV
     Route: 042
     Dates: start: 20070910, end: 20070910
  2. HYDROCHLOROTHIAZIDE [Concomitant]
  3. FENTANYL [Concomitant]
  4. COLACE [Concomitant]
  5. TEMAZEPAM [Concomitant]
  6. CELEXA [Concomitant]
  7. MISOPROSTOL [Concomitant]
  8. SENNA [Concomitant]
  9. ACETYLSALICYLIC ACID SRT [Concomitant]
  10. AMITRIPTYLINE HCL [Concomitant]
  11. KEFLEX [Concomitant]

REACTIONS (4)
  - COMA [None]
  - CONFUSIONAL STATE [None]
  - DEHYDRATION [None]
  - RESPIRATORY DISTRESS [None]
